FAERS Safety Report 6527972-3 (Version None)
Quarter: 2009Q4

REPORT INFORMATION
  Report Type: 
  Country: None (occurrence: None)
  Receive Date: 20091229
  Receipt Date: 20091221
  Transmission Date: 20100525
  Serious: Yes (Hospitalization)
  Sender: FDA-Public Use
  Company Number: 2009SP042713

PATIENT
  Age: 53 Year
  Sex: Female

DRUGS (1)
  1. TEMODAL [Suspect]
     Indication: GLIOBLASTOMA
     Dosage: 110 MG;QD;PO
     Route: 048
     Dates: end: 20091204

REACTIONS (3)
  - NEUTROPENIA [None]
  - PURPURA [None]
  - THROMBOCYTOPENIA [None]
